FAERS Safety Report 9464245 (Version 1)
Quarter: 2013Q3

REPORT INFORMATION
  Report Type: Spontaneous
  Country: US (occurrence: US)
  Receive Date: 20130819
  Receipt Date: 20130819
  Transmission Date: 20140515
  Serious: Yes (Hospitalization, Other)
  Sender: FDA-Public Use
  Company Number: US-ELI_LILLY_AND_COMPANY-US201308004428

PATIENT
  Age: 14 Year
  Sex: Female

DRUGS (4)
  1. HUMALOG LISPRO [Suspect]
     Indication: TYPE 1 DIABETES MELLITUS
     Dosage: UNK
     Route: 058
  2. LANTUS [Concomitant]
     Dosage: 33 U, QD
  3. CLARITIN                           /00917501/ [Concomitant]
     Dosage: UNK, QD
  4. OMEPRAZOLE [Concomitant]
     Dosage: 20 MG, QD

REACTIONS (1)
  - Diabetic ketoacidosis [Unknown]
